FAERS Safety Report 6301834-9 (Version None)
Quarter: 2009Q3

REPORT INFORMATION
  Report Type: 
  Country: None (occurrence: None)
  Receive Date: 20090807
  Receipt Date: 20090729
  Transmission Date: 20100115
  Serious: Yes (Disabling, Other)
  Sender: FDA-Public Use
  Company Number: US-CELGENEUS-163-21880-09062041

PATIENT
  Sex: Male

DRUGS (2)
  1. REVLIMID [Suspect]
     Indication: MULTIPLE MYELOMA
     Route: 048
     Dates: start: 20090527
  2. REVLIMID [Suspect]
     Route: 048
     Dates: start: 20090624

REACTIONS (2)
  - METASTATIC NEOPLASM [None]
  - MUSCULAR WEAKNESS [None]
